FAERS Safety Report 25604017 (Version 1)
Quarter: 2025Q3

REPORT INFORMATION
  Report Type: Spontaneous
  Country: US (occurrence: US)
  Receive Date: 20250725
  Receipt Date: 20250725
  Transmission Date: 20251020
  Serious: Yes (Hospitalization, Disabling, Other)
  Sender: NOVO NORDISK
  Company Number: US-NOVOPROD-1483525

PATIENT
  Sex: Male

DRUGS (3)
  1. TRESIBA [Suspect]
     Active Substance: INSULIN DEGLUDEC
     Indication: Type 2 diabetes mellitus
     Dosage: 60 IU, BID
     Route: 058
     Dates: start: 2015
  2. OZEMPIC [Suspect]
     Active Substance: SEMAGLUTIDE
     Indication: Type 2 diabetes mellitus
     Dosage: 0.25 MG, QW
     Route: 058
     Dates: start: 2021
  3. NOVOLOG [Suspect]
     Active Substance: INSULIN ASPART
     Indication: Type 2 diabetes mellitus
     Dosage: 8 IU, TID

REACTIONS (7)
  - Disability [Unknown]
  - Shoulder operation [Not Recovered/Not Resolved]
  - Shoulder operation [Not Recovered/Not Resolved]
  - Fall [Recovered/Resolved]
  - Prostate cancer [Unknown]
  - Neuropathy peripheral [Recovered/Resolved]
  - Condition aggravated [Recovered/Resolved]

NARRATIVE: CASE EVENT DATE: 20220101
